FAERS Safety Report 17231346 (Version 2)
Quarter: 2020Q2

REPORT INFORMATION
  Report Type: Spontaneous
  Country: US (occurrence: US)
  Receive Date: 20200103
  Receipt Date: 20200529
  Transmission Date: 20200713
  Serious: No
  Sender: FDA-Public Use
  Company Number: US-PFIZER INC-2019561626

PATIENT
  Age: 48 Year
  Sex: Female

DRUGS (1)
  1. XELJANZ XR [Suspect]
     Active Substance: TOFACITINIB CITRATE
     Indication: PSORIATIC ARTHROPATHY
     Dosage: 11 MG, DAILY
     Route: 048
     Dates: start: 202004

REACTIONS (4)
  - Rash macular [Unknown]
  - Skin exfoliation [Unknown]
  - Arthralgia [Unknown]
  - Fatigue [Unknown]
